FAERS Safety Report 5771579-2 (Version None)
Quarter: 2008Q2

REPORT INFORMATION
  Report Type: 
  Country: None (occurrence: None)
  Receive Date: 20080613
  Receipt Date: 20080604
  Transmission Date: 20081010
  Serious: Yes (Hospitalization, Other)
  Sender: FDA-Public Use
  Company Number: DE-BAYER-200819852GPV

PATIENT
  Age: 64 Year
  Sex: Female

DRUGS (15)
  1. ALEMTUZUMAB [Suspect]
     Indication: BONE MARROW CONDITIONING REGIMEN
     Route: 065
  2. IDARUBICIN HCL [Suspect]
     Indication: MULTIPLE MYELOMA
     Route: 048
  3. DEXAMETHASONE TAB [Suspect]
     Indication: MULTIPLE MYELOMA
     Route: 048
  4. CYCLOPHOSPHAMIDE [Suspect]
     Indication: HAEMATOPOIETIC STEM CELL MOBILISATION
     Route: 065
  5. MELPHALAN [Suspect]
     Indication: BONE MARROW CONDITIONING REGIMEN
     Route: 065
  6. TACROLIMUS [Suspect]
     Indication: IMMUNOSUPPRESSION
     Route: 065
  7. MYCOPHENOLATE MOFETIL [Suspect]
     Indication: IMMUNOSUPPRESSION
     Route: 065
  8. NEUPOGEN [Concomitant]
     Indication: HAEMATOPOIETIC STEM CELL MOBILISATION
     Route: 065
  9. NEUPOGEN [Concomitant]
     Route: 065
  10. PIPERACILLIN AND TAZOBACTAM [Concomitant]
     Indication: FEBRILE NEUTROPENIA
     Route: 065
  11. CEFTAZIDIME [Concomitant]
     Indication: FEBRILE NEUTROPENIA
     Route: 065
  12. TEICOPLANINE [Concomitant]
     Indication: FEBRILE NEUTROPENIA
     Route: 065
  13. CASPOFUNGIN [Concomitant]
     Indication: FEBRILE NEUTROPENIA
     Route: 065
  14. MERONEM [Concomitant]
     Indication: FEBRILE NEUTROPENIA
     Route: 065
  15. ITRACONAZOL [Concomitant]
     Indication: FEBRILE NEUTROPENIA
     Route: 065

REACTIONS (5)
  - CHOLECYSTITIS INFECTIVE [None]
  - HAEMOLYTIC ANAEMIA [None]
  - PNEUMONIA [None]
  - PSEUDOMONAL SEPSIS [None]
  - RESPIRATORY FAILURE [None]
